FAERS Safety Report 9432892 (Version 2)
Quarter: 2014Q3

REPORT INFORMATION
  Report Type: Report from Study
  Country: MX (occurrence: MX)
  Receive Date: 20130731
  Receipt Date: 20140714
  Transmission Date: 20150326
  Serious: No
  Sender: FDA-Public Use
  Company Number: PHHY2013MX080098

PATIENT
  Age: 61 Year
  Sex: Female

DRUGS (6)
  1. LOPID [Concomitant]
     Active Substance: GEMFIBROZIL
     Indication: HYPERTRIGLYCERIDAEMIA
     Dosage: 1 DF (600 MG), DAILY
     Dates: start: 2008, end: 2013
  2. EXFORGE HCT [Suspect]
     Active Substance: AMLODIPINE BESYLATE\HYDROCHLOROTHIAZIDE\VALSARTAN
     Indication: HYPERTENSION
     Dosage: 1 DF (320/10/25 MG), DAILY
     Route: 048
     Dates: start: 201202, end: 201210
  3. JANUMET [Concomitant]
     Active Substance: METFORMIN HYDROCHLORIDE\SITAGLIPTIN PHOSPHATE
     Indication: DIABETES MELLITUS
     Dosage: 1 DF (850/50 MG) DAILY
     Dates: start: 2000
  4. ASPIRIN PROTECT [Concomitant]
     Active Substance: ASPIRIN
     Indication: CARDIOVASCULAR EVENT PROPHYLAXIS
     Dosage: 1 DF (100 MG), DAILY
  5. KARET [Concomitant]
     Indication: HYPOTHYROIDISM
     Dosage: 1 DF (100 UG), DAILY
  6. EXFORGE HCT [Suspect]
     Active Substance: AMLODIPINE BESYLATE\HYDROCHLOROTHIAZIDE\VALSARTAN
     Dosage: 0.5 DF (160/5/12.5 MG) IN MORNING AND 0.5 DF (160/5/12.5 MG) IN THE EVENING)
     Route: 048
     Dates: start: 201210

REACTIONS (4)
  - Headache [Recovered/Resolved]
  - Wrong technique in drug usage process [Unknown]
  - Hyperuricaemia [Not Recovered/Not Resolved]
  - Dizziness [Recovered/Resolved]

NARRATIVE: CASE EVENT DATE: 201210
